FAERS Safety Report 20739586 (Version 1)
Quarter: 2022Q2

REPORT INFORMATION
  Report Type: Report from Study
  Country: MX (occurrence: MX)
  Receive Date: 20220422
  Receipt Date: 20220422
  Transmission Date: 20220720
  Serious: Yes (Other)
  Sender: FDA-Public Use
  Company Number: MX-NOVARTISPH-NVSC2022MX093088

PATIENT
  Sex: Female
  Weight: 68 kg

DRUGS (2)
  1. EXFORGE HCT [Suspect]
     Active Substance: AMLODIPINE BESYLATE\HYDROCHLOROTHIAZIDE\VALSARTAN
     Indication: Hypertension
     Dosage: 1 DOSAGE FORM, QD (10/320/25 MG)
     Route: 048
  2. EXFORGE HCT [Suspect]
     Active Substance: AMLODIPINE BESYLATE\HYDROCHLOROTHIAZIDE\VALSARTAN
     Dosage: 1.5 DOSAGE FORM, (10/320/25 MG))
     Route: 048

REACTIONS (10)
  - Spinal fracture [Unknown]
  - Fall [Unknown]
  - Dyspnoea [Unknown]
  - Sleep disorder [Unknown]
  - Anxiety [Unknown]
  - Mood swings [Unknown]
  - Mood altered [Unknown]
  - Depression [Unknown]
  - Insomnia [Unknown]
  - Wrong technique in product usage process [Unknown]
